FAERS Safety Report 5047707-3 (Version None)
Quarter: 2006Q2

REPORT INFORMATION
  Report Type: 
  Country: None (occurrence: None)
  Receive Date: 20060601
  Receipt Date: 20060202
  Transmission Date: 20061013
  Serious: No
  Sender: FDA-Public Use
  Company Number: US200602001103

PATIENT
  Age: 80 Year
  Sex: Female

DRUGS (1)
  1. CYMBALTA [Suspect]
     Dosage: SEE IMAGE
     Dates: start: 20060112

REACTIONS (2)
  - GASTROOESOPHAGEAL REFLUX DISEASE [None]
  - PHARYNGOLARYNGEAL PAIN [None]
